FAERS Safety Report 4493068-8 (Version None)
Quarter: 2004Q4

REPORT INFORMATION
  Report Type: 
  Country: None (occurrence: None)
  Receive Date: 20041104
  Receipt Date: 20040812
  Transmission Date: 20050328
  Serious: Yes (Other)
  Sender: FDA-Public Use
  Company Number: USA040259396

PATIENT
  Age: 30 Year
  Sex: Male
  Weight: 118.2 kg

DRUGS (3)
  1. PAXIL [Suspect]
     Indication: SOCIAL PHOBIA
     Dosage: 62.5MG PER DAY
     Route: 048
     Dates: start: 20020901, end: 20040301
  2. CONCERTA [Concomitant]
     Indication: ATTENTION DEFICIT/HYPERACTIVITY DISORDER
     Dosage: 36MG PER DAY
     Route: 048
     Dates: start: 20031103, end: 20040105
  3. STRATTERA [Concomitant]
     Indication: ATTENTION DEFICIT/HYPERACTIVITY DISORDER
     Dosage: 80MG PER DAY
     Route: 048
     Dates: start: 20040106

REACTIONS (5)
  - CONVULSION [None]
  - DISORIENTATION [None]
  - LOSS OF CONSCIOUSNESS [None]
  - MIGRAINE [None]
  - SOMNOLENCE [None]
